FAERS Safety Report 7988854-3 (Version None)
Quarter: 2011Q4

REPORT INFORMATION
  Report Type: 
  Country: None (occurrence: None)
  Receive Date: 20111215
  Receipt Date: 20111215
  Transmission Date: 20120403
  Serious: Yes (Other)
  Sender: FDA-Public Use
  Company Number: None

PATIENT
  Sex: Female
  Weight: 62.1428 kg

DRUGS (1)
  1. CYMBALTA [Suspect]
     Dosage: 1 A DAY MOUTH
     Route: 048
     Dates: start: 20110801

REACTIONS (16)
  - MYALGIA [None]
  - WEIGHT INCREASED [None]
  - BLOOD SODIUM DECREASED [None]
  - HEADACHE [None]
  - PYREXIA [None]
  - DYSPEPSIA [None]
  - CONFUSIONAL STATE [None]
  - VISION BLURRED [None]
  - SKIN IRRITATION [None]
  - FATIGUE [None]
  - POLLAKIURIA [None]
  - MUSCULAR WEAKNESS [None]
  - HYPERTENSION [None]
  - INSOMNIA [None]
  - PAIN [None]
  - PANIC ATTACK [None]
